FAERS Safety Report 4496855-5 (Version None)
Quarter: 2004Q4

REPORT INFORMATION
  Report Type: 
  Country: None (occurrence: None)
  Receive Date: 20041109
  Receipt Date: 20041103
  Transmission Date: 20050328
  Serious: Yes (Disabling)
  Sender: FDA-Public Use
  Company Number: FR-GLAXOSMITHKLINE-B0350264A

PATIENT
  Age: 36 Year
  Sex: Female

DRUGS (1)
  1. VALACYCLOVIR HCL [Suspect]
     Dosage: 500MG UNKNOWN
     Route: 048

REACTIONS (3)
  - DIZZINESS [None]
  - FEELING DRUNK [None]
  - VESTIBULAR DISORDER [None]
